FAERS Safety Report 19713629 (Version 4)
Quarter: 2021Q3

REPORT INFORMATION
  Report Type: Report from Study
  Country: None (occurrence: US)
  Receive Date: 20210817
  Receipt Date: 20210920
  Transmission Date: 20211014
  Serious: Yes (Other)
  Sender: FDA-Public Use
  Company Number: US-ABBVIE-21K-163-4036674-00

PATIENT
  Sex: Female

DRUGS (2)
  1. VENCLEXTA [Suspect]
     Active Substance: VENETOCLAX
     Route: 048
  2. VENCLEXTA [Suspect]
     Active Substance: VENETOCLAX
     Indication: B-CELL PROLYMPHOCYTIC LEUKAEMIA
     Route: 048
     Dates: start: 20200724

REACTIONS (23)
  - White blood cell count abnormal [Unknown]
  - Renal function test abnormal [Unknown]
  - Medication error [Unknown]
  - Haemoglobin decreased [Recovering/Resolving]
  - Chronic obstructive pulmonary disease [Unknown]
  - Muscle twitching [Unknown]
  - Swelling [Unknown]
  - Back pain [Unknown]
  - Pulmonary oedema [Unknown]
  - Oropharyngeal pain [Recovering/Resolving]
  - Pharyngeal mass [Unknown]
  - Taste disorder [Unknown]
  - Illness [Unknown]
  - Vulvovaginal pain [Recovering/Resolving]
  - Fungal pharyngitis [Recovering/Resolving]
  - Rales [Unknown]
  - Respiratory tract congestion [Unknown]
  - Candida infection [Recovering/Resolving]
  - Dyspnoea [Unknown]
  - Oesophageal disorder [Not Recovered/Not Resolved]
  - Pneumonia [Recovering/Resolving]
  - Arthralgia [Unknown]
  - Vulvovaginal mycotic infection [Recovering/Resolving]
